FAERS Safety Report 12078702 (Version 3)
Quarter: 2017Q4

REPORT INFORMATION
  Report Type: Spontaneous
  Country: US (occurrence: US)
  Receive Date: 20160216
  Receipt Date: 20171230
  Transmission Date: 20180320
  Serious: Yes (Life-Threatening, Hospitalization, Other)
  Sender: FDA-Public Use
  Company Number: US-ACCORD-037891

PATIENT
  Age: 51 Year
  Sex: Male

DRUGS (1)
  1. CAPECITABINE. [Suspect]
     Active Substance: CAPECITABINE
     Indication: COLORECTAL CANCER
     Dosage: (825 MG/M2 BID 3500 MG/DAY) ALONG WITH RADIOTHERAPY DELIVERING 50.4 GY

REACTIONS (5)
  - Febrile neutropenia [Recovered/Resolved]
  - Small intestinal obstruction [Recovered/Resolved]
  - Irritable bowel syndrome [Recovered/Resolved]
  - Abdominal pain [Recovered/Resolved]
  - Rash [Recovered/Resolved]
